FAERS Safety Report 18049695 (Version 1)
Quarter: 2020Q3

REPORT INFORMATION
  Report Type: Spontaneous
  Country: SG (occurrence: SG)
  Receive Date: 20200721
  Receipt Date: 20200721
  Transmission Date: 20201104
  Serious: Yes (Other)
  Sender: FDA-Public Use
  Company Number: SG-PFIZER INC-2020276578

PATIENT
  Age: 45 Year
  Sex: Female

DRUGS (3)
  1. TALAZOPARIB. [Suspect]
     Active Substance: TALAZOPARIB
     Dosage: 0.75 MG
  2. TALAZOPARIB. [Suspect]
     Active Substance: TALAZOPARIB
     Dosage: 0.5 MG
  3. TALAZOPARIB. [Suspect]
     Active Substance: TALAZOPARIB
     Dosage: 1 MG, DAILY

REACTIONS (2)
  - Haematotoxicity [Unknown]
  - Thrombocytopenia [Unknown]
